FAERS Safety Report 26123045 (Version 1)
Quarter: 2025Q4

REPORT INFORMATION
  Report Type: Spontaneous
  Country: EU (occurrence: EU)
  Receive Date: 20251204
  Receipt Date: 20251204
  Transmission Date: 20260118
  Serious: Yes (Hospitalization, Other)
  Sender: MERCK SHARP & DOHME LLC
  Company Number: EU-009507513-2356957

PATIENT
  Age: 73 Year
  Sex: Female

DRUGS (3)
  1. PEMBROLIZUMAB [Suspect]
     Active Substance: PEMBROLIZUMAB
     Indication: Clear cell renal cell carcinoma
     Dosage: 200 MG, EVERY 21 DAYS
     Dates: start: 202501, end: 202501
  2. LENVATINIB [Suspect]
     Active Substance: LENVATINIB
     Indication: Clear cell renal cell carcinoma
     Dates: start: 202501, end: 202501
  3. LENVATINIB [Suspect]
     Active Substance: LENVATINIB
     Indication: Clear cell renal cell carcinoma
     Dates: start: 20250818, end: 20250827

REACTIONS (5)
  - Impaired gastric emptying [Unknown]
  - Enterocolitis [Recovering/Resolving]
  - Immune-mediated enterocolitis [Recovering/Resolving]
  - Decreased appetite [Unknown]
  - Food intolerance [Unknown]

NARRATIVE: CASE EVENT DATE: 20250101
